FAERS Safety Report 10362625 (Version 2)
Quarter: 2014Q3

REPORT INFORMATION
  Report Type: Spontaneous
  Country: US (occurrence: US)
  Receive Date: 20140805
  Receipt Date: 20140926
  Transmission Date: 20150326
  Serious: Yes (Death, Hospitalization, Other)
  Sender: FDA-Public Use
  Company Number: US-009507513-1408USA000934

PATIENT
  Sex: Male
  Weight: 104.31 kg

DRUGS (1)
  1. JANUMET [Suspect]
     Active Substance: METFORMIN HYDROCHLORIDE\SITAGLIPTIN PHOSPHATE
     Indication: TYPE 2 DIABETES MELLITUS
     Dosage: 50/1000 MG, QD
     Route: 048
     Dates: start: 20111104, end: 20120621

REACTIONS (10)
  - Bile duct stent insertion [Unknown]
  - Cholelithiasis [Unknown]
  - Gynaecomastia [Unknown]
  - Small intestine carcinoma [Unknown]
  - Diverticulum intestinal [Unknown]
  - Pancreatic carcinoma [Unknown]
  - Death [Fatal]
  - Peritoneal lesion [Unknown]
  - Bladder diverticulum [Unknown]
  - Metastases to lung [Unknown]

NARRATIVE: CASE EVENT DATE: 201206
